FAERS Safety Report 8717125 (Version 2)
Quarter: 2013Q4

REPORT INFORMATION
  Report Type: Spontaneous
  Country: FR (occurrence: FR)
  Receive Date: 20120810
  Receipt Date: 20131105
  Transmission Date: 20140711
  Serious: Yes (Hospitalization, Other)
  Sender: FDA-Public Use
  Company Number: FR-MERCK-1208FRA003760

PATIENT
  Age: 85 Year
  Sex: Female

DRUGS (11)
  1. RENITEC [Suspect]
     Indication: HYPERTENSION
     Dosage: 20 MG, QD
     Route: 048
     Dates: end: 20120305
  2. LERCAN [Suspect]
     Dosage: 20 MG, QD
     Route: 048
     Dates: end: 20120305
  3. PREVISCAN [Suspect]
     Dosage: 6.25 MG, QD
     Route: 048
     Dates: start: 20120229, end: 20120303
  4. FLUDEX [Suspect]
     Dosage: 1.5 MG, QD
     Route: 048
  5. TEMERIT [Suspect]
     Dosage: 5 MG, QD
     Route: 048
  6. PHYSIOTENS [Suspect]
     Dosage: 0.4 MG, QD
     Route: 048
  7. FORTZAAR 100 MG/25 MG, COMPRIM? PELLICUL? [Suspect]
     Dosage: 100 MG - 25  MG, QD
     Route: 048
  8. PLAVIX [Concomitant]
     Dosage: UNK
     Dates: start: 20120302
  9. TAHOR [Concomitant]
     Dosage: UNK
     Dates: start: 20120302
  10. HUMALOG [Concomitant]
     Dosage: 28 IU, QD
     Dates: start: 20120302
  11. LANTUS [Concomitant]
     Dosage: 19 IU, QD

REACTIONS (3)
  - International normalised ratio increased [Recovered/Resolved]
  - Renal failure acute [Recovered/Resolved]
  - Hyperkalaemia [Recovered/Resolved]
